FAERS Safety Report 5888560-5 (Version None)
Quarter: 2008Q3

REPORT INFORMATION
  Report Type: 
  Country: None (occurrence: None)
  Receive Date: 20080918
  Receipt Date: 20080827
  Transmission Date: 20090109
  Serious: No
  Sender: FDA-Public Use
  Company Number: US-B.I. PHARMACEUTICALS,INC./RIDGEFIELD-2008-BP-13843BP

PATIENT
  Sex: Male

DRUGS (1)
  1. FLOMAX [Suspect]

REACTIONS (2)
  - NASAL CONGESTION [None]
  - RHINORRHOEA [None]
